FAERS Safety Report 9215259 (Version 2)
Quarter: 2013Q2

REPORT INFORMATION
  Report Type: Report from Study
  Country: DE (occurrence: DE)
  Receive Date: 20130405
  Receipt Date: 20130502
  Transmission Date: 20140414
  Serious: Yes (Hospitalization)
  Sender: FDA-Public Use
  Company Number: DE-UCBSA-082159

PATIENT
  Age: 47 Year
  Sex: Male

DRUGS (7)
  1. VIMPAT [Suspect]
     Indication: EPILEPSY
     Dosage: DAILY DOSE-100 MG
     Dates: start: 20080916, end: 2008
  2. VIMPAT [Suspect]
     Indication: EPILEPSY
     Dosage: DAILY DOSE-400 MG
     Dates: start: 2008
  3. VIMPAT [Suspect]
     Indication: EPILEPSY
     Dosage: DAILY DOSE-450 MG
     Dates: end: 20090731
  4. PHENOBARBITONE [Concomitant]
     Indication: EPILEPSY
     Dosage: DAILY DOSE-200 MG
  5. OXCARBACEPINE [Concomitant]
     Indication: EPILEPSY
     Dates: end: 2008
  6. OXCARBACEPINE [Concomitant]
     Indication: EPILEPSY
     Dates: start: 2008
  7. PREGABALIN [Concomitant]
     Indication: EPILEPSY
     Dosage: DAILY DOSE-525 MG

REACTIONS (2)
  - Grand mal convulsion [Unknown]
  - Drug ineffective [Recovered/Resolved]
